FAERS Safety Report 13203890 (Version 1)
Quarter: 2017Q1

REPORT INFORMATION
  Report Type: Other
  Country: NO (occurrence: NO)
  Receive Date: 20170209
  Receipt Date: 20170209
  Transmission Date: 20170428
  Serious: Yes (Other)
  Sender: FDA-Public Use
  Company Number: NO-STRIDES ARCOLAB LIMITED-2017SP001469

PATIENT

DRUGS (2)
  1. INTERFERON GAMMA-1B [Suspect]
     Active Substance: INTERFERON GAMMA-1B
     Indication: PRODUCT USED FOR UNKNOWN INDICATION
     Dosage: UNK
  2. RANITIDINE. [Suspect]
     Active Substance: RANITIDINE
     Indication: PRODUCT USED FOR UNKNOWN INDICATION
     Dosage: UNK

REACTIONS (4)
  - Nausea [Unknown]
  - Malaise [Unknown]
  - Dehydration [Not Recovered/Not Resolved]
  - Chest pain [Unknown]
